FAERS Safety Report 5486663-0 (Version None)
Quarter: 2007Q3

REPORT INFORMATION
  Report Type: 
  Country: None (occurrence: None)
  Receive Date: 20070925
  Receipt Date: 20070627
  Transmission Date: 20080115
  Serious: No
  Sender: FDA-Public Use
  Company Number: 2007US001077

PATIENT
  Age: 78 Year
  Sex: Female

DRUGS (3)
  1. VESICARE [Suspect]
     Indication: POLLAKIURIA
     Dosage: 5 MG, ORAL
     Route: 048
     Dates: start: 20070401
  2. VERAPAMIL [Concomitant]
  3. AVAPRO [Concomitant]

REACTIONS (7)
  - BLOOD PRESSURE INCREASED [None]
  - CONSTIPATION [None]
  - COUGH [None]
  - DRUG INEFFECTIVE [None]
  - DYSPEPSIA [None]
  - EPISTAXIS [None]
  - VISION BLURRED [None]
